FAERS Safety Report 17571600 (Version 1)
Quarter: 2020Q1

REPORT INFORMATION
  Report Type: Spontaneous
  Country: CA (occurrence: CA)
  Receive Date: 20200323
  Receipt Date: 20200323
  Transmission Date: 20200409
  Serious: Yes (Other)
  Sender: FDA-Public Use
  Company Number: CA-TEVA-2020-CA-1207745

PATIENT
  Sex: Male

DRUGS (1)
  1. TOLTERODINE [Suspect]
     Active Substance: TOLTERODINE
     Indication: HYPERTONIC BLADDER
     Route: 048

REACTIONS (5)
  - Fungal infection [Unknown]
  - Skin fissures [Unknown]
  - Penile erythema [Unknown]
  - Penile haemorrhage [Unknown]
  - Penis disorder [Unknown]
